FAERS Safety Report 23633261 (Version 2)
Quarter: 2024Q2

REPORT INFORMATION
  Report Type: Spontaneous
  Country: EG (occurrence: EG)
  Receive Date: 20240314
  Receipt Date: 20240502
  Transmission Date: 20240716
  Serious: Yes (Hospitalization, Other)
  Sender: FDA-Public Use
  Company Number: EG-PFIZER INC-PV202400034763

PATIENT
  Sex: Male

DRUGS (6)
  1. CIBINQO [Suspect]
     Active Substance: ABROCITINIB
     Dosage: UNK, 1X/DAY
     Route: 048
  2. AERIUS S [Concomitant]
     Dosage: UNK
  3. INSULIN NOS [Concomitant]
     Active Substance: INSULIN NOS
     Indication: Diabetes mellitus
     Dosage: UNK
  4. NEORAL [Concomitant]
     Active Substance: CYCLOSPORINE
     Dosage: 100
  5. ESZOPICLONE [Concomitant]
     Active Substance: ESZOPICLONE
     Dosage: UNK
  6. FEXOFENADINE [Concomitant]
     Active Substance: FEXOFENADINE HYDROCHLORIDE
     Dosage: 180

REACTIONS (2)
  - Pneumonia [Recovered/Resolved]
  - White blood cell count decreased [Unknown]
